FAERS Safety Report 12729178 (Version 1)
Quarter: 2016Q3

REPORT INFORMATION
  Report Type: Spontaneous
  Country: NO (occurrence: NO)
  Receive Date: 20160909
  Receipt Date: 20160909
  Transmission Date: 20161109
  Serious: Yes (Other)
  Sender: FDA-Public Use
  Company Number: NO-MALLINCKRODT-T201604284

PATIENT
  Age: 20 Year
  Sex: Male
  Weight: 57 kg

DRUGS (5)
  1. UVADEX [Suspect]
     Active Substance: METHOXSALEN
     Dosage: 3.6ML UVADEX, 212 TREATMENT VOLUME
     Dates: start: 20160830, end: 20160830
  2. UVADEX [Suspect]
     Active Substance: METHOXSALEN
     Indication: CHRONIC GRAFT VERSUS HOST DISEASE IN SKIN
     Dosage: UNKNOWN
     Dates: start: 20160805, end: 20160805
  3. ANTICOAGULANT CITRATE DEXTROSE SOLUTION (ACD) NOS [Concomitant]
     Active Substance: CITRIC ACID MONOHYDRATE\DEXTROSE\SODIUM CITRATE
     Indication: ANTICOAGULANT THERAPY
     Dosage: UNK
     Dates: start: 20160830, end: 20160830
  4. UVADEX [Suspect]
     Active Substance: METHOXSALEN
     Indication: SCLERODERMA
     Dosage: UNKNOWN
     Dates: start: 20160816, end: 20160816
  5. UVADEX [Suspect]
     Active Substance: METHOXSALEN
     Dosage: UNKNOWN
     Dates: start: 20160817, end: 20160817

REACTIONS (9)
  - Off label use [Unknown]
  - Headache [Recovered/Resolved]
  - Malaise [Recovered/Resolved]
  - Pain [Recovered/Resolved]
  - Pyrexia [Recovered/Resolved]
  - Fatigue [Unknown]
  - Hypotension [Recovered/Resolved]
  - Sepsis [Recovered/Resolved]
  - Dyspnoea [Recovered/Resolved]

NARRATIVE: CASE EVENT DATE: 20160829
